FAERS Safety Report 13679588 (Version 1)
Quarter: 2017Q2

REPORT INFORMATION
  Report Type: Other
  Country: FR (occurrence: FR)
  Receive Date: 20170622
  Receipt Date: 20170622
  Transmission Date: 20170830
  Serious: Yes (Death, Hospitalization)
  Sender: FDA-Public Use
  Company Number: FR-GE HEALTHCARE LIFE SCIENCES-2017CSU001748

PATIENT

DRUGS (16)
  1. VISIPAQUE [Suspect]
     Active Substance: IODIXANOL
     Indication: PRODUCT USED FOR UNKNOWN INDICATION
     Dosage: UNK, SINGLE
     Route: 042
     Dates: start: 20170505, end: 20170505
  2. THALIDOMIDE CELGENE [Suspect]
     Active Substance: THALIDOMIDE
     Indication: SYSTEMIC LUPUS ERYTHEMATOSUS
     Dosage: 50 MG, UNK
     Route: 048
     Dates: end: 20170505
  3. AMIKACINE                          /00391001/ [Suspect]
     Active Substance: AMIKACIN
     Indication: SEPSIS
     Dosage: UNK
     Route: 042
     Dates: start: 20170505, end: 20170508
  4. TRIMEBUTINE ARROW [Suspect]
     Active Substance: TRIMEBUTINE MALEATE
     Indication: PRODUCT USED FOR UNKNOWN INDICATION
     Dosage: 100 MG, UNK
     Route: 048
     Dates: start: 20170502, end: 20170509
  5. NIVESTIM [Suspect]
     Active Substance: FILGRASTIM
     Indication: PRODUCT USED FOR UNKNOWN INDICATION
     Dosage: UNK
     Route: 042
     Dates: start: 20170505, end: 20170507
  6. AMLODIPINE [Concomitant]
     Active Substance: AMLODIPINE BESYLATE
     Indication: HYPERTENSION
     Dosage: 5 MG, UNK
     Route: 048
  7. DIFFU K [Concomitant]
     Active Substance: POTASSIUM CHLORIDE
     Indication: PRODUCT USED FOR UNKNOWN INDICATION
     Route: 048
  8. ROCEPHINE [Suspect]
     Active Substance: CEFTRIAXONE SODIUM
     Indication: SEPSIS
     Dosage: UNK
     Route: 042
     Dates: start: 20170505
  9. PIPERACILLIN AND TAZOBACTAM [Suspect]
     Active Substance: PIPERACILLIN SODIUM\TAZOBACTAM SODIUM
     Indication: SEPSIS
     Dosage: UNK
     Route: 048
     Dates: start: 20170505, end: 20170508
  10. DISCOTRINE [Concomitant]
     Active Substance: NITROGLYCERIN
     Indication: PRODUCT USED FOR UNKNOWN INDICATION
  11. VOGALENE [Suspect]
     Active Substance: METOPIMAZINE
     Indication: PRODUCT USED FOR UNKNOWN INDICATION
     Dosage: 7.5 MG, UNK
     Route: 048
     Dates: start: 20170503, end: 20170509
  12. LASILIX                            /00032601/ [Concomitant]
     Active Substance: FUROSEMIDE
     Indication: PRODUCT USED FOR UNKNOWN INDICATION
  13. PANTOPRAZOLE SODIUM. [Concomitant]
     Active Substance: PANTOPRAZOLE SODIUM
     Indication: PRODUCT USED FOR UNKNOWN INDICATION
     Route: 048
  14. PLAQUENIL                          /00072602/ [Concomitant]
     Active Substance: HYDROXYCHLOROQUINE DIPHOSPHATE
     Indication: SYSTEMIC LUPUS ERYTHEMATOSUS
  15. VALSARTAN ARROW [Concomitant]
     Active Substance: VALSARTAN
     Indication: HYPERTENSION
     Dosage: 80 UNK, UNK
     Route: 048
  16. CIPROFLOXACINE ARROW [Suspect]
     Active Substance: CIPROFLOXACIN
     Indication: SEPSIS
     Dosage: UNK
     Route: 048
     Dates: start: 20170428, end: 20170504

REACTIONS (1)
  - Toxic epidermal necrolysis [Fatal]

NARRATIVE: CASE EVENT DATE: 20170515
